FAERS Safety Report 9818136 (Version 1)
Quarter: 2014Q1

REPORT INFORMATION
  Report Type: Spontaneous
  Country: FR (occurrence: FR)
  Receive Date: 20140115
  Receipt Date: 20140115
  Transmission Date: 20141002
  Serious: Yes (Hospitalization)
  Sender: FDA-Public Use
  Company Number: PHHY2014FR002793

PATIENT
  Age: 76 Year
  Sex: Female

DRUGS (11)
  1. RASILEZ HCT [Suspect]
     Dosage: 1 DF (300MG ALIS AND 25MG HCTZ), QD
     Route: 048
     Dates: end: 20131020
  2. RASILEZ HCT [Suspect]
     Dosage: UNK UKN, UNK
  3. METFORMIN [Suspect]
     Dosage: UNK UKN, UNK
     Route: 048
     Dates: end: 20131020
  4. METFORMIN [Suspect]
     Dosage: UNK UKN, UNK
  5. FUROSEMID [Suspect]
     Dosage: 1.5 DF, QD
     Route: 048
     Dates: end: 20131020
  6. FUROSEMID [Suspect]
     Dosage: UNK UKN, UNK
  7. FENOFIBRATE [Suspect]
     Dosage: 1 DF, QD
     Route: 048
     Dates: end: 20131020
  8. AUGMENTIN [Suspect]
     Indication: COUGH
     Dosage: UNK UKN, QD
     Route: 048
     Dates: start: 20131017, end: 20131020
  9. LERCAN [Concomitant]
     Dosage: UNK UKN, UNK
  10. ACEBUTOLOL HYDROCHLORIDE [Concomitant]
     Dosage: UNK UKN, UNK
  11. HYPERIUM [Concomitant]
     Dosage: UNK UKN, UNK

REACTIONS (5)
  - Dehydration [Recovered/Resolved]
  - Renal failure acute [Recovered/Resolved]
  - Hypokalaemia [Recovered/Resolved]
  - Diarrhoea [Recovered/Resolved]
  - Vomiting [Recovered/Resolved]
